FAERS Safety Report 8779348 (Version 2)
Quarter: 2012Q4

REPORT INFORMATION
  Report Type: 
  Country: US (occurrence: US)
  Receive Date: 20120912
  Receipt Date: 20120924
  Transmission Date: 20130627
  Serious: Yes (Other)
  Sender: FDA-Public Use
  Company Number: US-AMGEN-USASP2012057124

PATIENT
  Age: 75 Year
  Sex: Female
  Weight: 89.34 kg

DRUGS (7)
  1. ENBREL [Suspect]
     Indication: RHEUMATOID ARTHRITIS
     Dosage: 50 mg, qwk
     Route: 058
     Dates: start: 20100210, end: 20110615
  2. TRAMADOL HCL [Concomitant]
     Indication: RHEUMATOID ARTHRITIS
     Dosage: 50 mg, 1-2 tabs q6h
     Route: 048
  3. ACETAMINOPHEN [Concomitant]
     Indication: RHEUMATOID ARTHRITIS
     Dosage: 325 mg, 2 tabs q6h prn
     Route: 048
  4. PREDNISONE [Concomitant]
     Indication: RHEUMATOID ARTHRITIS
     Dosage: 1 mg, 2 tabs qd
     Route: 048
  5. METHOTREXATE [Concomitant]
     Indication: RHEUMATOID ARTHRITIS
     Dosage: 2.5 mg, 8 tabs qwk
     Route: 048
  6. FOLIC ACID [Concomitant]
     Indication: RHEUMATOID ARTHRITIS
     Dosage: 1 mg, qd
     Route: 048
  7. FENTANYL CITRATE [Concomitant]
     Dosage: 50 mcg, lollipop apply to the chest every 3 days

REACTIONS (11)
  - Hepatic cancer stage IV [Not Recovered/Not Resolved]
  - Lung carcinoma cell type unspecified stage IV [Not Recovered/Not Resolved]
  - Bone cancer [Not Recovered/Not Resolved]
  - Carcinoma in situ [Unknown]
  - Autoimmune thyroiditis [Unknown]
  - Fibromyalgia [Unknown]
  - Osteopenia [Unknown]
  - Sjogren^s syndrome [Unknown]
  - Gastrooesophageal reflux disease [Unknown]
  - Nocturia [Unknown]
  - Rheumatoid arthritis [Not Recovered/Not Resolved]
